FAERS Safety Report 13695797 (Version 1)
Quarter: 2017Q2

REPORT INFORMATION
  Report Type: Report from Study
  Country: IT (occurrence: IT)
  Receive Date: 20170627
  Receipt Date: 20170627
  Transmission Date: 20170830
  Serious: Yes (Life-Threatening)
  Sender: FDA-Public Use
  Company Number: IT-MYLANLABS-2017M1037500

PATIENT

DRUGS (1)
  1. DICLOFENAC [Suspect]
     Active Substance: DICLOFENAC
     Indication: ACCIDENTAL EXPOSURE TO PRODUCT
     Dosage: 200MG
     Route: 048

REACTIONS (2)
  - Accidental exposure to product by child [Recovering/Resolving]
  - Restlessness [Recovering/Resolving]
